FAERS Safety Report 8462070-3 (Version None)
Quarter: 2012Q2

REPORT INFORMATION
  Report Type: 
  Country: None (occurrence: None)
  Receive Date: 20120323
  Receipt Date: 20111209
  Transmission Date: 20120825
  Serious: Yes (Other)
  Sender: FDA-Public Use
  Company Number: 163-21880-11100576

PATIENT
  Age: 75 Year
  Sex: Male
  Weight: 83.0083 kg

DRUGS (18)
  1. SYNTHROID [Concomitant]
  2. VITAMIN E [Concomitant]
  3. VITAMIN B12 [Concomitant]
  4. SUDAFED 12 HOUR [Concomitant]
  5. RELAFEN [Concomitant]
  6. PROZAC [Concomitant]
  7. PHYTONADIONE [Concomitant]
  8. NEXIUM [Concomitant]
  9. LORAZEPAM [Concomitant]
  10. DEXAMETHASONE [Concomitant]
  11. LIPITOR [Concomitant]
  12. AVODART [Concomitant]
  13. ASPIRIN [Concomitant]
  14. MULTIVITAMIN [Concomitant]
  15. POTASSIUM CHLORIDE [Concomitant]
  16. REVLIMID [Suspect]
     Indication: MULTIPLE MYELOMA
     Dosage: 15 MG, 21/7, PO; 10 MG, 1 IN 1 D, PO
     Route: 048
     Dates: start: 20110913, end: 20110926
  17. REVLIMID [Suspect]
     Indication: MULTIPLE MYELOMA
     Dosage: 15 MG, 21/7, PO; 10 MG, 1 IN 1 D, PO
     Route: 048
     Dates: start: 20111011
  18. HYDROCHLOROTHIAZIDE [Concomitant]

REACTIONS (2)
  - NEUTROPENIA [None]
  - PLATELET COUNT DECREASED [None]
